FAERS Safety Report 6468835-1 (Version None)
Quarter: 2009Q4

REPORT INFORMATION
  Report Type: 
  Country: None (occurrence: None)
  Receive Date: 20091203
  Receipt Date: 20090114
  Transmission Date: 20100525
  Serious: Yes (Hospitalization)
  Sender: FDA-Public Use
  Company Number: GB-ELI_LILLY_AND_COMPANY-GBS050918409

PATIENT
  Age: 49 Year
  Sex: Female

DRUGS (4)
  1. GEMCITABINE HCL [Suspect]
     Indication: GESTATIONAL TROPHOBLASTIC TUMOUR
     Dosage: UNK, UNKNOWN
     Route: 042
  2. CARBOPLATIN [Concomitant]
     Indication: GESTATIONAL TROPHOBLASTIC TUMOUR
     Dosage: UNK, UNKNOWN
  3. TAXOL [Concomitant]
     Indication: GESTATIONAL TROPHOBLASTIC TUMOUR
     Dosage: UNK, UNKNOWN
     Route: 065
  4. GENERAL ANESTHESIA [Concomitant]
     Indication: GENERAL ANAESTHESIA
     Dosage: UNK, UNKNOWN

REACTIONS (2)
  - DRUG INTERACTION [None]
  - REVERSIBLE POSTERIOR LEUKOENCEPHALOPATHY SYNDROME [None]
